FAERS Safety Report 5507967-9 (Version None)
Quarter: 2007Q4

REPORT INFORMATION
  Report Type: 
  Country: None (occurrence: None)
  Receive Date: 20071106
  Receipt Date: 20071022
  Transmission Date: 20080405
  Serious: Yes (Life-Threatening, Hospitalization, Disabling)
  Sender: FDA-Public Use
  Company Number: ES-ROCHE-346232

PATIENT
  Age: 61 Year
  Sex: Male
  Weight: 68.6 kg

DRUGS (9)
  1. DACLIZUMAB [Suspect]
     Dosage: FORM REPORTED AS VIAL.
     Route: 042
     Dates: start: 20030403, end: 20030602
  2. MYCOPHENOLATE MOFETIL [Suspect]
     Route: 048
     Dates: start: 20030403, end: 20030830
  3. CYCLOSPORINE [Suspect]
     Dosage: 25 MG AT 8 AM AND 50 MG AT 8 PM.
     Route: 048
     Dates: start: 20030403, end: 20030804
  4. PREDNISONE [Suspect]
     Route: 048
     Dates: start: 20030403
  5. SIROLIMUS [Suspect]
     Route: 048
     Dates: start: 20030805
  6. AMLODIPINE [Concomitant]
     Route: 048
     Dates: start: 20030414
  7. CARVEDILOL [Concomitant]
     Route: 048
     Dates: start: 20030414
  8. RANITIDINE [Concomitant]
     Route: 048
     Dates: start: 20030414
  9. ASPIRIN [Concomitant]
     Route: 048
     Dates: start: 20030414

REACTIONS (3)
  - ANGIOPATHY [None]
  - CYTOMEGALOVIRUS TEST [None]
  - PNEUMONIA BACTERIAL [None]
